FAERS Safety Report 13939477 (Version 1)
Quarter: 2017Q3

REPORT INFORMATION
  Report Type: Spontaneous
  Country: US (occurrence: US)
  Receive Date: 20170906
  Receipt Date: 20170906
  Transmission Date: 20171127
  Serious: No
  Sender: FDA-Public Use
  Company Number: US-PFIZER INC-2017378540

PATIENT
  Age: 77 Year
  Sex: Female

DRUGS (2)
  1. PANTOPRAZOLE [Suspect]
     Active Substance: PANTOPRAZOLE
     Dosage: UNK
  2. LABETALOL HYDROCHLORIDE. [Suspect]
     Active Substance: LABETALOL HYDROCHLORIDE
     Dosage: UNK

REACTIONS (9)
  - Grip strength decreased [Unknown]
  - Nodal osteoarthritis [Unknown]
  - Blood sodium increased [Unknown]
  - Blood urea nitrogen/creatinine ratio decreased [Unknown]
  - Blood creatinine increased [Unknown]
  - Synovitis [Unknown]
  - Glomerular filtration rate decreased [Unknown]
  - Blood potassium decreased [Unknown]
  - Heart rate increased [Unknown]
